FAERS Safety Report 5412571-7 (Version None)
Quarter: 2007Q3

REPORT INFORMATION
  Report Type: 
  Country: None (occurrence: None)
  Receive Date: 20070713
  Receipt Date: 20070518
  Transmission Date: 20080115
  Serious: Yes (Hospitalization)
  Sender: FDA-Public Use
  Company Number: US-JNJFOC-20060905208

PATIENT
  Age: 40 Year
  Sex: Female
  Weight: 75.2971 kg

DRUGS (3)
  1. ORTHO EVRA [Suspect]
     Indication: MENORRHAGIA
     Dosage: 1 DOSE(S), 3 IN 4 WEEK, TRANSDERMAL
     Route: 062
     Dates: start: 20030101, end: 20030401
  2. PREVACID [Concomitant]
  3. DIAMOX [Concomitant]

REACTIONS (2)
  - INTENTIONAL DRUG MISUSE [None]
  - PORTAL VEIN THROMBOSIS [None]
